FAERS Safety Report 8622061-6 (Version None)
Quarter: 2012Q3

REPORT INFORMATION
  Report Type: 
  Country: None (occurrence: None)
  Receive Date: 20120825
  Receipt Date: 20120820
  Transmission Date: 20120928
  Serious: Yes (Hospitalization)
  Sender: FDA-Public Use
  Company Number: JP-ROCHE-1107183

PATIENT
  Sex: Male

DRUGS (8)
  1. ACTEMRA [Suspect]
     Route: 041
     Dates: start: 20110425
  2. LOXONIN [Concomitant]
     Indication: RHEUMATOID ARTHRITIS
     Route: 048
  3. ACTEMRA [Suspect]
     Indication: RHEUMATOID ARTHRITIS
     Route: 041
     Dates: start: 20090313, end: 20101029
  4. LOXONIN [Concomitant]
     Route: 048
  5. FOLIC ACID [Concomitant]
     Indication: RHEUMATOID ARTHRITIS
     Route: 048
  6. MUCOSTA [Concomitant]
     Route: 048
  7. MUCOSTA [Concomitant]
     Indication: PROPHYLAXIS
     Route: 048
  8. RHEUMATREX [Concomitant]
     Indication: RHEUMATOID ARTHRITIS
     Route: 048
     Dates: end: 20101201

REACTIONS (1)
  - INTERSTITIAL LUNG DISEASE [None]
